FAERS Safety Report 6892471-6 (Version None)
Quarter: 2010Q3

REPORT INFORMATION
  Report Type: 
  Country: None (occurrence: None)
  Receive Date: 20100731
  Receipt Date: 20080519
  Transmission Date: 20110219
  Serious: No
  Sender: FDA-Public Use
  Company Number: US-PFIZER INC-2008042776

PATIENT
  Sex: Female

DRUGS (1)
  1. NEURONTIN [Suspect]
     Indication: CHEST PAIN
     Dates: start: 20070101

REACTIONS (3)
  - CONFUSIONAL STATE [None]
  - DIZZINESS [None]
  - FEELING DRUNK [None]
